FAERS Safety Report 8520762-1 (Version None)
Quarter: 2012Q3

REPORT INFORMATION
  Report Type: 
  Country: None (occurrence: None)
  Receive Date: 20120719
  Receipt Date: 20120717
  Transmission Date: 20120928
  Serious: Yes (Other)
  Sender: FDA-Public Use
  Company Number: US-PFIZER INC-2012135845

PATIENT
  Sex: Female

DRUGS (5)
  1. ALDACTONE [Suspect]
     Dosage: UNK
  2. GLUCOTROL [Suspect]
     Dosage: UNK
  3. PROCARDIA [Suspect]
     Dosage: UNK
  4. NEURONTIN [Suspect]
     Dosage: UNK
  5. ZOLOFT [Suspect]
     Dosage: UNK

REACTIONS (1)
  - CARDIAC DISORDER [None]
